FAERS Safety Report 10503755 (Version 3)
Quarter: 2015Q1

REPORT INFORMATION
  Report Type: Spontaneous
  Country: JP (occurrence: JP)
  Receive Date: 20141008
  Receipt Date: 20150311
  Transmission Date: 20150720
  Serious: Yes (Other)
  Sender: FDA-Public Use
  Company Number: JP-AMGEN-JPNSP2014076726

PATIENT
  Age: 70 Year
  Sex: Female

DRUGS (5)
  1. RANMARK [Suspect]
     Active Substance: DENOSUMAB
     Indication: METASTASES TO BONE
     Dosage: 120 MG, UNK
     Route: 058
     Dates: start: 20120719
  2. ENDOXAN                            /00021101/ [Concomitant]
     Active Substance: CYCLOPHOSPHAMIDE
     Indication: METASTASES TO LUNG
     Dosage: 50 MG, BID
     Route: 065
  3. ZOMETA [Concomitant]
     Active Substance: ZOLEDRONIC ACID
     Indication: METASTASES TO BONE
     Dosage: 4 MG, 1/30 TIME
     Dates: start: 200804, end: 201206
  4. HYSRON H [Concomitant]
     Indication: METASTASES TO LUNG
     Dosage: 200 MG, TID
     Route: 065
  5. FURTULON [Concomitant]
     Active Substance: DOXIFLURIDINE
     Indication: METASTASES TO LUNG
     Dosage: 200 MG, TOTAL 20 TIMES
     Route: 065

REACTIONS (1)
  - Osteonecrosis of jaw [Not Recovered/Not Resolved]

NARRATIVE: CASE EVENT DATE: 20140626
